FAERS Safety Report 8765833 (Version 1)
Quarter: 2012Q4

REPORT INFORMATION
  Report Type: 
  Country: TR (occurrence: TR)
  Receive Date: 20120903
  Receipt Date: 20120903
  Transmission Date: 20130627
  Serious: Yes (Hospitalization)
  Sender: FDA-Public Use
  Company Number: TR-AMGEN-TURSP2012046064

PATIENT
  Age: 70 Year
  Sex: Female

DRUGS (1)
  1. ENBREL [Suspect]
     Indication: RHEUMATOID ARTHRITIS
     Dosage: 50 , weekly
     Route: 058
     Dates: start: 20120502, end: 20120528

REACTIONS (2)
  - Osteoporosis [Recovering/Resolving]
  - Platelet count decreased [Recovered/Resolved]
